FAERS Safety Report 16021237 (Version 1)
Quarter: 2019Q2

REPORT INFORMATION
  Report Type: Spontaneous
  Country: US (occurrence: US)
  Receive Date: 20190228
  Receipt Date: 20190228
  Transmission Date: 20190711
  Serious: Yes (Disabling)
  Sender: FDA-Public Use
  Company Number: None

PATIENT
  Age: 47 Year
  Sex: Female
  Weight: 63 kg

DRUGS (2)
  1. INFLECTRA [Suspect]
     Active Substance: INFLIXIMAB-DYYB
     Indication: PSORIATIC ARTHROPATHY
  2. REMICADE [Suspect]
     Active Substance: INFLIXIMAB
     Indication: PSORIATIC ARTHROPATHY
     Route: 042
     Dates: start: 20170630, end: 20180601

REACTIONS (7)
  - Limb discomfort [None]
  - Muscular weakness [None]
  - Dizziness [None]
  - Burning sensation [None]
  - Skin sensitisation [None]
  - Feeling of body temperature change [None]
  - Neurological symptom [None]

NARRATIVE: CASE EVENT DATE: 20171016
